FAERS Safety Report 7999670-0 (Version None)
Quarter: 2011Q4

REPORT INFORMATION
  Report Type: 
  Country: None (occurrence: None)
  Receive Date: 20111221
  Receipt Date: 20111216
  Transmission Date: 20120403
  Serious: Yes (Death)
  Sender: FDA-Public Use
  Company Number: US-ASTRAZENECA-2011SE76925

PATIENT
  Age: 21 Year
  Sex: Male

DRUGS (6)
  1. QUETIAPINE [Suspect]
     Route: 048
  2. CITALOPRAM [Suspect]
     Route: 048
  3. 10- HYDROXYCARBAZEPINE [Suspect]
     Route: 048
  4. ANTIPSYCHOTIC [Suspect]
     Route: 048
  5. ANTICONVULSANT [Suspect]
     Route: 048
  6. ANTIDEPRESSENT [Suspect]
     Route: 048

REACTIONS (2)
  - COMPLETED SUICIDE [None]
  - TOXICITY TO VARIOUS AGENTS [None]
